FAERS Safety Report 8923834 (Version 2)
Quarter: 2012Q4

REPORT INFORMATION
  Report Type: 
  Country: US (occurrence: US)
  Receive Date: 20121126
  Receipt Date: 20121128
  Transmission Date: 20130627
  Serious: No
  Sender: FDA-Public Use
  Company Number: US-BAYER-2012-119847

PATIENT
  Age: 58 Year
  Sex: Female

DRUGS (2)
  1. MENOSTAR [Suspect]
     Dosage: UNK
     Dates: start: 2008
  2. PROGESTERONE [Suspect]
     Dosage: 100 mg, UNK
     Dates: start: 201211

REACTIONS (5)
  - Application site rash [Recovering/Resolving]
  - Rash generalised [Recovering/Resolving]
  - Swelling face [None]
  - Oedema peripheral [None]
  - Product adhesion issue [None]
